FAERS Safety Report 8243591-5 (Version None)
Quarter: 2012Q1

REPORT INFORMATION
  Report Type: 
  Country: None (occurrence: None)
  Receive Date: 20120329
  Receipt Date: 20120321
  Transmission Date: 20120608
  Serious: Yes (Hospitalization, Other)
  Sender: FDA-Public Use
  Company Number: DE-ABBOTT-12P-062-0917425-00

PATIENT
  Age: 36 Year
  Sex: Male

DRUGS (5)
  1. HUMIRA [Suspect]
     Indication: RHEUMATOID ARTHRITIS
     Route: 058
     Dates: start: 20040201, end: 20110601
  2. ETANERCEPT [Concomitant]
     Indication: PRODUCT USED FOR UNKNOWN INDICATION
     Dates: start: 20030401, end: 20031001
  3. INFLIXIMAB [Concomitant]
     Indication: PRODUCT USED FOR UNKNOWN INDICATION
     Dates: start: 20020901, end: 20030401
  4. METHOTREXATE [Concomitant]
     Indication: PRODUCT USED FOR UNKNOWN INDICATION
     Dates: start: 19950201, end: 20110601
  5. LEFLUNOMIDE [Concomitant]
     Indication: PRODUCT USED FOR UNKNOWN INDICATION
     Dosage: 10MG DAILY
     Dates: end: 20111201

REACTIONS (12)
  - GAIT DISTURBANCE [None]
  - BRAIN STEM INFARCTION [None]
  - DYSARTHRIA [None]
  - SINUSITIS [None]
  - PARAESTHESIA [None]
  - HEMIPARESIS [None]
  - NECK PAIN [None]
  - VERTIGO [None]
  - EYELID PTOSIS [None]
  - HYPOAESTHESIA ORAL [None]
  - WALLENBERG SYNDROME [None]
  - GENERAL PHYSICAL HEALTH DETERIORATION [None]
